FAERS Safety Report 5421628-6 (Version None)
Quarter: 2007Q3

REPORT INFORMATION
  Report Type: 
  Country: None (occurrence: None)
  Receive Date: 20070821
  Receipt Date: 20070810
  Transmission Date: 20080115
  Serious: Yes (Hospitalization)
  Sender: FDA-Public Use
  Company Number: JP-PFIZER INC-2007053740

PATIENT
  Sex: Male

DRUGS (9)
  1. LIPITOR [Suspect]
     Dosage: DAILY DOSE:10MG
     Route: 048
  2. ATENOLOL [Suspect]
     Dosage: DAILY DOSE:50MG-FREQ:DAY
     Route: 048
  3. ASPIRIN [Suspect]
     Dosage: DAILY DOSE:100MG-FREQ:DAY
     Route: 048
     Dates: start: 20070427, end: 20070610
  4. ZANTAC 150 [Suspect]
     Dosage: DAILY DOSE:150MG-FREQ:DAY
     Route: 048
     Dates: start: 20070427, end: 20070610
  5. BEPRICOR [Suspect]
     Dosage: DAILY DOSE:100MG-FREQ:DAY
     Route: 048
     Dates: start: 20070427, end: 20070610
  6. SIGMART [Suspect]
     Dosage: DAILY DOSE:15MG-FREQ:DAY
     Route: 048
     Dates: start: 20070427, end: 20070610
  7. LENDORMIN [Suspect]
     Dosage: DAILY DOSE:.25MG-FREQ:DAY
     Route: 048
  8. WARFARIN [Suspect]
     Dosage: DAILY DOSE:.5MG-FREQ:DAY
     Route: 048
     Dates: start: 20070427, end: 20070610
  9. MUCOSOLVAN [Suspect]
     Route: 048

REACTIONS (6)
  - AGRANULOCYTOSIS [None]
  - CARDIAC FAILURE [None]
  - ENTERITIS INFECTIOUS [None]
  - PLEURAL EFFUSION [None]
  - PO2 DECREASED [None]
  - PULMONARY OEDEMA [None]
